FAERS Safety Report 23993256 (Version 1)
Quarter: 2024Q2

REPORT INFORMATION
  Report Type: Spontaneous
  Country: FR (occurrence: FR)
  Receive Date: 20240620
  Receipt Date: 20240620
  Transmission Date: 20240716
  Serious: Yes (Other)
  Sender: FDA-Public Use
  Company Number: None

PATIENT

DRUGS (15)
  1. JEMPERLI [Interacting]
     Active Substance: DOSTARLIMAB-GXLY
     Indication: Endometrial cancer
     Dosage: 500 MG (TOTAL)
     Route: 042
     Dates: start: 20240122, end: 20240122
  2. JEMPERLI [Interacting]
     Active Substance: DOSTARLIMAB-GXLY
     Dosage: 500 MG (TOTAL)
     Route: 042
     Dates: start: 20240215, end: 20240215
  3. JEMPERLI [Interacting]
     Active Substance: DOSTARLIMAB-GXLY
     Dosage: 500 MG (TOTAL)
     Route: 042
     Dates: start: 20240313, end: 20240313
  4. JEMPERLI [Interacting]
     Active Substance: DOSTARLIMAB-GXLY
     Dosage: 500 MG,  (TOTAL)
     Route: 042
     Dates: start: 20240403, end: 20240403
  5. JEMPERLI [Interacting]
     Active Substance: DOSTARLIMAB-GXLY
     Dosage: 500 MG (TOTAL)
     Route: 042
     Dates: start: 20240424, end: 20240424
  6. CARBOPLATIN [Interacting]
     Active Substance: CARBOPLATIN
     Indication: Endometrial cancer
     Dosage: 840 MG (TOTAL)
     Route: 042
     Dates: start: 20240122, end: 20240122
  7. CARBOPLATIN [Interacting]
     Active Substance: CARBOPLATIN
     Dosage: 830 MG (TOTAL)
     Route: 042
     Dates: start: 20240215, end: 20240215
  8. CARBOPLATIN [Interacting]
     Active Substance: CARBOPLATIN
     Dosage: 520 MG (TOTAL)
     Route: 042
     Dates: start: 20240313, end: 20240313
  9. CARBOPLATIN [Interacting]
     Active Substance: CARBOPLATIN
     Dosage: 425 MG (TOTAL)
     Route: 042
     Dates: start: 20240403, end: 20240403
  10. CARBOPLATIN [Interacting]
     Active Substance: CARBOPLATIN
     Dosage: 425 MG (TOTAL)
     Route: 042
     Dates: start: 20240424, end: 20240424
  11. PACLITAXEL [Interacting]
     Active Substance: PACLITAXEL
     Indication: Endometrial cancer
     Dosage: 279 MG (TOTAL)
     Route: 042
     Dates: start: 20240122, end: 20240122
  12. PACLITAXEL [Interacting]
     Active Substance: PACLITAXEL
     Dosage: 264 MG (TOTAL)
     Route: 042
     Dates: start: 20240215, end: 20240215
  13. PACLITAXEL [Interacting]
     Active Substance: PACLITAXEL
     Dosage: 264 MG (TOTAL)
     Route: 042
     Dates: start: 20240313, end: 20240313
  14. PACLITAXEL [Interacting]
     Active Substance: PACLITAXEL
     Dosage: 264 MG (TOTAL)
     Route: 042
     Dates: start: 20240403, end: 20240403
  15. PACLITAXEL [Interacting]
     Active Substance: PACLITAXEL
     Dosage: 264 MG (TOTAL)
     Route: 042
     Dates: start: 20240424, end: 20240424

REACTIONS (3)
  - Pancytopenia [Recovering/Resolving]
  - Asthenia [Recovering/Resolving]
  - Drug interaction [Unknown]

NARRATIVE: CASE EVENT DATE: 20240513
